FAERS Safety Report 15563937 (Version 1)
Quarter: 2018Q4

REPORT INFORMATION
  Report Type: Report from Study
  Country: None (occurrence: US)
  Receive Date: 20181030
  Receipt Date: 20181030
  Transmission Date: 20190205
  Serious: Yes (Hospitalization)
  Sender: FDA-Public Use
  Company Number: US-ABBVIE-18K-163-2535869-00

PATIENT
  Sex: Male

DRUGS (1)
  1. HUMIRA [Suspect]
     Active Substance: ADALIMUMAB
     Indication: PSORIATIC ARTHROPATHY
     Route: 058
     Dates: start: 201809

REACTIONS (11)
  - Psoriasis [Unknown]
  - Hypertriglyceridaemia [Unknown]
  - Musculoskeletal pain [Not Recovered/Not Resolved]
  - Arthralgia [Recovering/Resolving]
  - Pancreatic disorder [Unknown]
  - Joint dislocation [Unknown]
  - Discomfort [Recovering/Resolving]
  - Mobility decreased [Recovering/Resolving]
  - Abdominal pain [Unknown]
  - Localised oedema [Unknown]
  - Accident at work [Unknown]

NARRATIVE: CASE EVENT DATE: 2018
